FAERS Safety Report 13150099 (Version 11)
Quarter: 2019Q4

REPORT INFORMATION
  Report Type: Spontaneous
  Country: CA (occurrence: CA)
  Receive Date: 20170125
  Receipt Date: 20191231
  Transmission Date: 20200122
  Serious: Yes (Hospitalization, Other)
  Sender: FDA-Public Use
  Company Number: CA-PFIZER INC-2016539837

PATIENT
  Age: 72 Year
  Sex: Female

DRUGS (7)
  1. NITROSPRAY [Concomitant]
     Active Substance: NITROGLYCERIN
     Dosage: UNK, AS NEEDED
     Route: 065
  2. XELJANZ [Suspect]
     Active Substance: TOFACITINIB CITRATE
     Dosage: 5 MG, 1X/DAY
     Route: 048
     Dates: start: 201703, end: 201809
  3. XELJANZ [Suspect]
     Active Substance: TOFACITINIB CITRATE
     Indication: RHEUMATOID ARTHRITIS
     Dosage: 5 MG, 2X/DAY
     Route: 048
     Dates: start: 20160323
  4. OXYCODONE [Concomitant]
     Active Substance: OXYCODONE
     Indication: PAIN
     Dosage: UNK
  5. TYLENOL [Concomitant]
     Active Substance: ACETAMINOPHEN
     Indication: ARTHRITIS
     Dosage: UNK
  6. FLUOXETINE TEVA [Concomitant]
     Active Substance: FLUOXETINE HYDROCHLORIDE
     Dosage: UNK
  7. CORTISONE [Concomitant]
     Active Substance: CORTISONE
     Dosage: UNK

REACTIONS (14)
  - Atrioventricular block [Unknown]
  - Cardiac arrest [Unknown]
  - Hypotension [Unknown]
  - Drug ineffective [Unknown]
  - Breast cancer recurrent [Not Recovered/Not Resolved]
  - Kidney infection [Unknown]
  - Pneumonia [Not Recovered/Not Resolved]
  - Joint injury [Unknown]
  - Sleep disorder [Unknown]
  - Bronchitis [Recovered/Resolved]
  - Circumstance or information capable of leading to medication error [Unknown]
  - Vaginal infection [Unknown]
  - Gait inability [Unknown]
  - Depressed mood [Unknown]

NARRATIVE: CASE EVENT DATE: 201702
